FAERS Safety Report 9227910 (Version 2)
Quarter: 2013Q2

REPORT INFORMATION
  Report Type: Spontaneous
  Country: US (occurrence: US)
  Receive Date: 20130412
  Receipt Date: 20130516
  Transmission Date: 20140414
  Serious: Yes (Hospitalization, Other)
  Sender: FDA-Public Use
  Company Number: US-PFIZER INC-2013111961

PATIENT
  Age: 49 Year
  Sex: 0

DRUGS (1)
  1. GEODON [Suspect]
     Dosage: 80 MG, 2X/DAY
     Route: 048

REACTIONS (2)
  - Suicidal ideation [Unknown]
  - Impaired work ability [Unknown]
